FAERS Safety Report 14644113 (Version 3)
Quarter: 2019Q3

REPORT INFORMATION
  Report Type: Spontaneous
  Country: US (occurrence: US)
  Receive Date: 20180315
  Receipt Date: 20190724
  Transmission Date: 20191004
  Serious: Yes (Other)
  Sender: FDA-Public Use
  Company Number: US-PFIZER INC-2018107821

PATIENT
  Age: 66 Year
  Sex: Female
  Weight: 77 kg

DRUGS (1)
  1. LYRICA [Suspect]
     Active Substance: PREGABALIN
     Indication: NEUROPATHY PERIPHERAL
     Dosage: 225 MG, 2X/DAY
     Dates: end: 201802

REACTIONS (6)
  - Feeding disorder [Unknown]
  - Urinary tract infection [Unknown]
  - Cystitis [Not Recovered/Not Resolved]
  - Feeling of body temperature change [Recovered/Resolved]
  - Burning sensation [Recovered/Resolved]
  - Malaise [Unknown]

NARRATIVE: CASE EVENT DATE: 201803
